FAERS Safety Report 8114803-3 (Version None)
Quarter: 2012Q1

REPORT INFORMATION
  Report Type: 
  Country: None (occurrence: None)
  Receive Date: 20120202
  Receipt Date: 20120202
  Transmission Date: 20120608
  Serious: Yes (Disabling)
  Sender: FDA-Public Use
  Company Number: None

PATIENT
  Sex: Female
  Weight: 58.9676 kg

DRUGS (1)
  1. ZYCAM [Suspect]
     Indication: NASOPHARYNGITIS
     Dosage: 4 TIMES PER MONTH
     Dates: start: 20040101, end: 20110101

REACTIONS (1)
  - ANOSMIA [None]
